FAERS Safety Report 7664482-4 (Version None)
Quarter: 2011Q3

REPORT INFORMATION
  Report Type: 
  Country: None (occurrence: None)
  Receive Date: 20110806
  Receipt Date: 20110221
  Transmission Date: 20111222
  Serious: No
  Sender: FDA-Public Use
  Company Number: US-ABBOTT-11P-163-0706489-00

PATIENT
  Sex: Female
  Weight: 72.64 kg

DRUGS (5)
  1. ASPIRIN [Concomitant]
     Indication: PRODUCT USED FOR UNKNOWN INDICATION
  2. JANUMET [Concomitant]
     Indication: PRODUCT USED FOR UNKNOWN INDICATION
  3. NIASPAN [Suspect]
  4. NIASPAN [Suspect]
     Indication: PRODUCT USED FOR UNKNOWN INDICATION
  5. EXFORGE [Concomitant]
     Indication: PRODUCT USED FOR UNKNOWN INDICATION

REACTIONS (7)
  - ABDOMINAL PAIN UPPER [None]
  - FLUSHING [None]
  - FEELING HOT [None]
  - HEART RATE INCREASED [None]
  - ABDOMINAL DISCOMFORT [None]
  - PARAESTHESIA [None]
  - GENERALISED ERYTHEMA [None]
